FAERS Safety Report 7526443-5 (Version None)
Quarter: 2011Q2

REPORT INFORMATION
  Report Type: 
  Country: None (occurrence: None)
  Receive Date: 20110603
  Receipt Date: 20110603
  Transmission Date: 20111010
  Serious: Yes (Other)
  Sender: FDA-Public Use
  Company Number: None

PATIENT
  Sex: Female
  Weight: 87.0906 kg

DRUGS (1)
  1. FOSAMAX [Suspect]
     Dosage: 70MG + 8WK ORAL
     Route: 048
     Dates: start: 20060613, end: 20100315

REACTIONS (2)
  - FAECAL INCONTINENCE [None]
  - DIARRHOEA [None]
